FAERS Safety Report 20028489 (Version 6)
Quarter: 2024Q3

REPORT INFORMATION
  Report Type: Report from Study
  Country: US (occurrence: US)
  Receive Date: 20211103
  Receipt Date: 20240925
  Transmission Date: 20241016
  Serious: Yes (Other)
  Sender: GLAXOSMITHKLINE
  Company Number: US-GLAXOSMITHKLINE-US2021AMR222304

PATIENT
  Age: 60 Year
  Sex: Female
  Weight: 55.9 kg

DRUGS (4)
  1. NIRAPARIB [Suspect]
     Active Substance: NIRAPARIB
     Indication: Ovarian cancer
     Dosage: 200 MG, QD (2, 100MG CAPSULES)
     Route: 048
     Dates: start: 202009, end: 20220104
  2. SERTRALINE [Concomitant]
     Active Substance: SERTRALINE HYDROCHLORIDE
     Indication: Product used for unknown indication
     Dosage: UNK
  3. CARVEDILOL [Concomitant]
     Active Substance: CARVEDILOL
     Indication: Hypertension
     Dosage: UNK
  4. AMLODIPINE [Concomitant]
     Active Substance: AMLODIPINE BESYLATE
     Indication: Hypertension
     Dosage: UNK

REACTIONS (9)
  - Malignant neoplasm progression [Unknown]
  - Metastases to pelvis [Unknown]
  - Recurrent cancer [Unknown]
  - Fatigue [Not Recovered/Not Resolved]
  - Loss of personal independence in daily activities [Not Recovered/Not Resolved]
  - Computerised tomogram abnormal [Unknown]
  - Gastrointestinal disorder [Unknown]
  - Nodule [Unknown]
  - Off label use [Unknown]

NARRATIVE: CASE EVENT DATE: 20200901
